FAERS Safety Report 12266450 (Version 1)
Quarter: 2016Q2

REPORT INFORMATION
  Report Type: Spontaneous
  Country: TR (occurrence: TR)
  Receive Date: 20160414
  Receipt Date: 20160414
  Transmission Date: 20160815
  Serious: Yes (Death, Hospitalization)
  Sender: FDA-Public Use
  Company Number: TR-CIPLA LTD.-2016TR03821

PATIENT

DRUGS (7)
  1. GEMCITABINE [Suspect]
     Active Substance: GEMCITABINE\GEMCITABINE HYDROCHLORIDE
     Indication: LEIOMYOSARCOMA METASTATIC
     Dosage: 900 MG/M2, OVER 90 MIN, ON DAYS 1 AND 8
     Route: 042
  2. GEMCITABINE [Suspect]
     Active Substance: GEMCITABINE\GEMCITABINE HYDROCHLORIDE
     Indication: METASTASES TO LUNG
     Dosage: UNK, SECOND CYCLE
  3. IFOSFAMIDE. [Suspect]
     Active Substance: IFOSFAMIDE
     Indication: METASTASES TO LUNG
  4. ASPIRIN. [Concomitant]
     Active Substance: ASPIRIN
     Dosage: UNK
     Route: 065
  5. DOCETAXEL. [Suspect]
     Active Substance: DOCETAXEL
     Indication: LEIOMYOSARCOMA METASTATIC
     Dosage: 100 MG/M2, OVER 1 HR, ON DAY 8
     Route: 042
  6. DOCETAXEL. [Suspect]
     Active Substance: DOCETAXEL
     Indication: METASTASES TO LUNG
  7. IFOSFAMIDE. [Suspect]
     Active Substance: IFOSFAMIDE
     Indication: LEIOMYOSARCOMA METASTATIC
     Dosage: UNK, TWO COURSES
     Route: 065

REACTIONS (2)
  - Disease progression [Fatal]
  - Acute coronary syndrome [Recovered/Resolved]
